FAERS Safety Report 19087034 (Version 1)
Quarter: 2021Q2

REPORT INFORMATION
  Report Type: Spontaneous
  Country: US (occurrence: US)
  Receive Date: 20210402
  Receipt Date: 20210402
  Transmission Date: 20210717
  Serious: Yes (Hospitalization)
  Sender: FDA-Public Use
  Company Number: None

PATIENT
  Age: 19 Year
  Sex: Male
  Weight: 68.6 kg

DRUGS (6)
  1. ONCASPAR [Suspect]
     Active Substance: PEGASPARGASE
     Dates: end: 20210317
  2. CYCLOPHOSPHAMIDE. [Suspect]
     Active Substance: CYCLOPHOSPHAMIDE
     Dates: end: 20210303
  3. VINCRISTINE SULFATE. [Suspect]
     Active Substance: VINCRISTINE SULFATE
     Dates: end: 20210324
  4. CYTARABINE. [Suspect]
     Active Substance: CYTARABINE
     Dates: end: 20210313
  5. MERCAPTOPURINE. [Suspect]
     Active Substance: MERCAPTOPURINE
     Dates: end: 20210316
  6. METHOTREXATE. [Suspect]
     Active Substance: METHOTREXATE
     Dates: end: 20210324

REACTIONS (8)
  - Asthenia [None]
  - Nausea [None]
  - Dizziness [None]
  - Blood lactic acid increased [None]
  - Heart rate increased [None]
  - Gastrooesophageal reflux disease [None]
  - Retching [None]
  - Sepsis [None]

NARRATIVE: CASE EVENT DATE: 20210324
